FAERS Safety Report 10416513 (Version 2)
Quarter: 2014Q4

REPORT INFORMATION
  Report Type: Report from Study
  Country: BR (occurrence: BR)
  Receive Date: 20140828
  Receipt Date: 20141224
  Transmission Date: 20150528
  Serious: Yes (Other)
  Sender: FDA-Public Use
  Company Number: BR-GLAXOSMITHKLINE-A1086613A

PATIENT
  Sex: Male
  Weight: 68 kg

DRUGS (2)
  1. CONCOR [Concomitant]
     Active Substance: BISOPROLOL FUMARATE
  2. PROPAFENONE HYDROCHLORIDE. [Suspect]
     Active Substance: PROPAFENONE HYDROCHLORIDE
     Indication: CARDIAC FAILURE
     Dosage: 600 MG, QD
     Route: 048
     Dates: start: 20130731

REACTIONS (2)
  - Visual impairment [Recovered/Resolved]
  - Cataract operation [Recovered/Resolved]
